FAERS Safety Report 8272607 (Version 4)
Quarter: 2012Q4

REPORT INFORMATION
  Report Type: Spontaneous
  Country: US (occurrence: None)
  Receive Date: 20111125
  Receipt Date: 20120822
  Transmission Date: 20130627
  Serious: Yes (Hospitalization, Other)
  Sender: FDA-Public Use
  Company Number: CIP11003099

PATIENT
  Age: 76 Year
  Sex: Female

DRUGS (9)
  1. DIDRONEL [Suspect]
     Indication: OSTEOPOROSIS POSTMENOPAUSAL
     Dosage: 200 MG TWICE DAILY TIMES TWO WEEKS CYCLIC EVERY 10 WEEKS, ORAL
     Route: 048
     Dates: start: 19931221, end: 19951229
  2. ACTONEL [Suspect]
     Indication: OSTEOPOROSIS POSTMENOPAUSAL
     Dosage: 35 MG ONCE WEEKLY, ORAL
     Route: 048
     Dates: start: 20021030, end: 2003
  3. FOSAMAX [Suspect]
     Indication: OSTEOPOROSIS POSTMENOPAUSAL
     Dosage: 10 MG DAILY, ORAL
     Route: 048
     Dates: start: 20010525, end: 200207
  4. BONIVA [Suspect]
     Indication: OSTEOPOROSIS
     Dosage: 150 MG ONCE MONTHLY, ORAL
     Route: 048
     Dates: start: 20051229, end: 200904
  5. BONIVA [Suspect]
     Indication: OSTEOPENIA
     Dosage: 150 MG ONCE MONTHLY, ORAL
     Route: 048
     Dates: start: 20051229, end: 200904
  6. TAGAMET [Concomitant]
  7. VOLTAREN [Concomitant]
  8. RANITIDINE HYDROCHLORIDE [Concomitant]
  9. CYTOTEC [Concomitant]

REACTIONS (19)
  - Femur fracture [None]
  - Fracture displacement [None]
  - Fall [None]
  - Low turnover osteopathy [None]
  - Abdominal discomfort [None]
  - Oedema peripheral [None]
  - Pain in extremity [None]
  - Stress fracture [None]
  - Haematoma [None]
  - Muscular weakness [None]
  - Gait disturbance [None]
  - Scar [None]
  - Fracture delayed union [None]
  - Deep vein thrombosis [None]
  - Bursitis [None]
  - Myopathy [None]
  - Soft tissue disorder [None]
  - Hyperparathyroidism [None]
  - Parathyroid tumour benign [None]
